FAERS Safety Report 24244829 (Version 1)
Quarter: 2024Q3

REPORT INFORMATION
  Report Type: Spontaneous
  Country: US (occurrence: US)
  Receive Date: 20240823
  Receipt Date: 20240823
  Transmission Date: 20241016
  Serious: No
  Sender: PFIZER
  Company Number: US-SEATTLE GENETICS-2024SGN05101

PATIENT
  Sex: Male

DRUGS (1)
  1. ADCETRIS [Suspect]
     Active Substance: BRENTUXIMAB VEDOTIN
     Indication: Product used for unknown indication
     Dosage: 1.8 MG/KG
     Route: 065

REACTIONS (5)
  - Loss of personal independence in daily activities [Unknown]
  - Gait disturbance [Unknown]
  - Malaise [Unknown]
  - Hypoaesthesia [Unknown]
  - Asthenia [Unknown]
